FAERS Safety Report 9077682 (Version 1)
Quarter: 2013Q1

REPORT INFORMATION
  Report Type: Report from Study
  Country: US (occurrence: US)
  Receive Date: 20130130
  Receipt Date: 20130130
  Transmission Date: 20140127
  Serious: No
  Sender: FDA-Public Use
  Company Number: US-ABBOTT-12P-163-0956175-00

PATIENT
  Age: 52 Year
  Sex: Female

DRUGS (6)
  1. HUMIRA 40 MG/0.8 ML PEN [Suspect]
     Indication: PSORIATIC ARTHROPATHY
     Dates: start: 20120426
  2. NORVASC [Concomitant]
     Indication: HYPERTENSION
     Dosage: DAILY
  3. HCTZ [Concomitant]
     Indication: HYPERTENSION
     Dosage: DAILY
  4. LORTAB [Concomitant]
     Indication: PAIN
     Dosage: DAILY
  5. VALIUM [Concomitant]
     Indication: MOTION SICKNESS
  6. SOMA [Concomitant]
     Indication: MOTION SICKNESS

REACTIONS (3)
  - Cough [Recovering/Resolving]
  - Nasopharyngitis [Recovering/Resolving]
  - Respiratory tract congestion [Recovering/Resolving]
